FAERS Safety Report 24306463 (Version 1)
Quarter: 2024Q3

REPORT INFORMATION
  Report Type: Spontaneous
  Country: US (occurrence: None)
  Receive Date: 20240910
  Receipt Date: 20240910
  Transmission Date: 20241017
  Serious: No
  Sender: Public
  Company Number: None

PATIENT
  Sex: Female

DRUGS (1)
  1. ALECENSA [Suspect]
     Active Substance: ALECTINIB HYDROCHLORIDE
     Indication: Lung neoplasm malignant
     Dosage: OTHER QUANTITY : TAKE 4 CAPSULES;?FREQUENCY : DAILY;?
     Route: 048
     Dates: start: 20240820

REACTIONS (1)
  - Haemoptysis [None]
